FAERS Safety Report 5607528-7 (Version None)
Quarter: 2008Q1

REPORT INFORMATION
  Report Type: 
  Country: None (occurrence: None)
  Receive Date: 20080130
  Receipt Date: 20080121
  Transmission Date: 20080703
  Serious: Yes (Hospitalization)
  Sender: FDA-Public Use
  Company Number: PHHO2008DE01243

PATIENT
  Age: 47 Year
  Sex: Male

DRUGS (4)
  1. NO TREATMENT RECEIVED NOMED [Suspect]
     Indication: RENAL TRANSPLANT
  2. SANDIMMUNE [Suspect]
     Indication: RENAL TRANSPLANT
     Dosage: 200 MG
     Route: 048
     Dates: start: 20060119
  3. DECORTIN-H [Concomitant]
     Indication: RENAL TRANSPLANT
     Dosage: 5 MG, QD
     Route: 048
     Dates: start: 20060119
  4. MYFORTIC [Concomitant]
     Indication: RENAL TRANSPLANT
     Dosage: 1440 MG
     Route: 048
     Dates: start: 20060119

REACTIONS (4)
  - ARTHRITIS [None]
  - ARTHROPATHY [None]
  - OEDEMA PERIPHERAL [None]
  - PAIN IN EXTREMITY [None]
